FAERS Safety Report 8796468 (Version 1)
Quarter: 2012Q4

REPORT INFORMATION
  Report Type: 
  Country: US (occurrence: US)
  Receive Date: 20120919
  Receipt Date: 20120919
  Transmission Date: 20130627
  Serious: Yes (Hospitalization, Disabling, Other)
  Sender: FDA-Public Use
  Company Number: US-MPIJNJ-2012-01290

PATIENT
  Age: 82 Year
  Sex: Male

DRUGS (1)
  1. VELCADE [Suspect]
     Indication: MULTIPLE MYELOMA
     Dosage: UNK
     Route: 042
     Dates: start: 20100628, end: 20100816

REACTIONS (9)
  - Disability [Unknown]
  - Deep vein thrombosis [Unknown]
  - Failure to thrive [Unknown]
  - Plasma cell myeloma [Unknown]
  - Hypotension [Recovered/Resolved with Sequelae]
  - Asthenia [Unknown]
  - Pancytopenia [Unknown]
  - Neuropathy peripheral [Unknown]
  - Muscular weakness [Unknown]
